APPROVED DRUG PRODUCT: GATTEX KIT
Active Ingredient: TEDUGLUTIDE
Strength: 5MG/VIAL
Dosage Form/Route: POWDER;SUBCUTANEOUS
Application: N203441 | Product #001
Applicant: TAKEDA PHARMACEUTICALS USA INC
Approved: Dec 21, 2012 | RLD: Yes | RS: Yes | Type: RX

PATENTS:
Patent 9060992 | Expires: Nov 1, 2025
Patent 7847061 | Expires: Nov 1, 2025
Patent 7847061*PED | Expires: May 1, 2026
Patent 9060992*PED | Expires: May 1, 2026

EXCLUSIVITY:
Code: ODE-240 | Date: May 16, 2026